FAERS Safety Report 17323937 (Version 2)
Quarter: 2024Q1

REPORT INFORMATION
  Report Type: Report from Study
  Country: DE (occurrence: DE)
  Receive Date: 20200127
  Receipt Date: 20240314
  Transmission Date: 20240410
  Serious: Yes (Other)
  Sender: FDA-Public Use
  Company Number: DE-CELLTRION INC.-2020DE017913

PATIENT

DRUGS (21)
  1. RITUXIMAB [Suspect]
     Active Substance: RITUXIMAB
     Indication: Follicular lymphoma
     Dosage: 1400 MG, Q3W (EQUAL TO 800)
     Route: 058
     Dates: start: 20160922
  2. RITUXIMAB [Suspect]
     Active Substance: RITUXIMAB
     Dosage: 1400 MG/M2 EVERY 3 WEEKS (1400 MG, Q3W (EQUAL TO 800))
     Route: 058
     Dates: start: 20160922
  3. RITUXIMAB [Suspect]
     Active Substance: RITUXIMAB
     Indication: Follicular lymphoma
     Dosage: 375 MG/M2 (EQUAL TO 800 MG)
     Route: 042
     Dates: start: 20160922, end: 20160922
  4. RITUXIMAB [Suspect]
     Active Substance: RITUXIMAB
     Indication: Follicular lymphoma
     Dosage: 1400 MG,  Q4W
     Route: 058
     Dates: start: 20160922
  5. RITUXIMAB [Suspect]
     Active Substance: RITUXIMAB
     Dosage: 1400 MG,  Q3W
     Route: 058
     Dates: start: 20161213
  6. RITUXIMAB [Suspect]
     Active Substance: RITUXIMAB
     Dosage: 1400 MG,  Q4W
     Route: 058
     Dates: start: 20170202
  7. RITUXIMAB [Suspect]
     Active Substance: RITUXIMAB
     Dosage: 1400 MG,  Q2MO
     Route: 058
     Dates: start: 20170330
  8. RITUXIMAB [Suspect]
     Active Substance: RITUXIMAB
     Dosage: 1400 MG,  Q3W
     Route: 058
     Dates: start: 20180301
  9. RITUXIMAB [Suspect]
     Active Substance: RITUXIMAB
     Dosage: 1400 MG EVERY 3 WEEKS (EQUAL TO 800 MG)
     Route: 042
     Dates: start: 20160922
  10. HYALURONIDASE (HUMAN RECOMBINANT)\RITUXIMAB [Suspect]
     Active Substance: HYALURONIDASE (HUMAN RECOMBINANT)\RITUXIMAB
     Indication: Follicular lymphoma
     Dosage: 1400 MILLIGRAM EVERY 3 WEEKS
     Route: 058
     Dates: start: 20161013, end: 20180301
  11. HYALURONIDASE (HUMAN RECOMBINANT)\RITUXIMAB [Suspect]
     Active Substance: HYALURONIDASE (HUMAN RECOMBINANT)\RITUXIMAB
     Dosage: 1400 MILLIGRAM EVERY 8 WEEKS
     Route: 058
     Dates: start: 20170330
  12. HYALURONIDASE (HUMAN RECOMBINANT)\RITUXIMAB [Suspect]
     Active Substance: HYALURONIDASE (HUMAN RECOMBINANT)\RITUXIMAB
     Dosage: 1400 MILLIGRAM EVERY 4 WEEKS (1400 MG, Q4W)
     Route: 058
     Dates: start: 20160922, end: 20170202
  13. ASPIRIN [Concomitant]
     Active Substance: ASPIRIN
     Indication: Coronary artery disease
     Dosage: 100 MG, QD (1-0-0)
     Route: 048
  14. CLOPIDOGREL [Concomitant]
     Active Substance: CLOPIDOGREL BISULFATE
     Indication: Product used for unknown indication
     Dosage: 75 MG, QD (1-0-0)
     Route: 048
  15. CLOPIDOGREL [Concomitant]
     Active Substance: CLOPIDOGREL BISULFATE
     Dosage: 300 MG, QD (1-0-0)
     Route: 048
  16. EZETIMIBE [Concomitant]
     Active Substance: EZETIMIBE
     Indication: Coronary artery disease
     Dosage: 10 MG, QD  (0-0-1)
     Route: 048
  17. METOPROLOL [Concomitant]
     Active Substance: METOPROLOL
     Indication: Coronary artery disease
     Dosage: 95 MG, QD  (1-0-1)
     Route: 048
  18. PANTOPRAZOLE [Concomitant]
     Active Substance: PANTOPRAZOLE
     Indication: Product used for unknown indication
     Dosage: 200 MG, QD  (1-0-0)
     Route: 048
  19. RAMIPRIL [Concomitant]
     Active Substance: RAMIPRIL
     Indication: Coronary artery disease
     Dosage: 5 MG, QD (1-0-0)
     Route: 048
  20. SIMVASTATIN [Concomitant]
     Active Substance: SIMVASTATIN
     Indication: Coronary artery disease
     Dosage: 80 MG, QD (0-0-1)
     Route: 048
  21. TRAMADOL [Concomitant]
     Active Substance: TRAMADOL\TRAMADOL HYDROCHLORIDE
     Indication: Spinal osteoarthritis
     Dosage: 300 MG, 1-0-0DEGENERATIVE SPINE SYNDROME
     Route: 048

REACTIONS (11)
  - Bronchitis [Recovered/Resolved]
  - Leukopenia [Recovered/Resolved]
  - Lymphadenopathy [Not Recovered/Not Resolved]
  - Lymphadenopathy [Not Recovered/Not Resolved]
  - Melanocytic naevus [Recovered/Resolved]
  - Pollakiuria [Unknown]
  - Pollakiuria [Unknown]
  - Polyneuropathy [Unknown]
  - Rash [Recovered/Resolved]
  - Overdose [Unknown]
  - Intentional product use issue [Unknown]

NARRATIVE: CASE EVENT DATE: 20161020
